FAERS Safety Report 7206336-3 (Version None)
Quarter: 2011Q1

REPORT INFORMATION
  Report Type: 
  Country: None (occurrence: None)
  Receive Date: 20110103
  Receipt Date: 20110103
  Transmission Date: 20110831
  Serious: Yes (Other)
  Sender: FDA-Public Use
  Company Number: PHHO2008ES06769

PATIENT
  Sex: Male

DRUGS (5)
  1. AFINITOR [Suspect]
     Indication: CARCINOID TUMOUR
     Dosage: 10 MG, QD
     Route: 048
     Dates: start: 20080310, end: 20080527
  2. COZAAR [Concomitant]
  3. SANDOSTATIN LAR [Suspect]
     Indication: CARCINOID TUMOUR
     Dosage: DOUBLE BLIND
     Route: 058
     Dates: start: 20080310, end: 20080527
  4. SANDOSTATIN LAR [Suspect]
     Dosage: NO TREATMENT
     Dates: start: 20080528
  5. AFINITOR [Suspect]
     Dosage: NO TREATMENT
     Dates: start: 20080528

REACTIONS (7)
  - INTERSTITIAL LUNG DISEASE [None]
  - PRODUCTIVE COUGH [None]
  - DYSPNOEA [None]
  - PYREXIA [None]
  - ASTHENIA [None]
  - C-REACTIVE PROTEIN INCREASED [None]
  - BLOOD LACTATE DEHYDROGENASE INCREASED [None]
